FAERS Safety Report 16265128 (Version 1)
Quarter: 2019Q2

REPORT INFORMATION
  Report Type: Report from Study
  Country: US (occurrence: US)
  Receive Date: 20190502
  Receipt Date: 20190502
  Transmission Date: 20190711
  Serious: No
  Sender: FDA-Public Use
  Company Number: US-RETROPHIN, INC.-2019RTN00022

PATIENT
  Age: 8 Year
  Sex: Male

DRUGS (2)
  1. CHOLBAM [Suspect]
     Active Substance: CHOLIC ACID
     Indication: ENZYME ABNORMALITY
     Dosage: 250 MG, 1X/DAY
     Dates: start: 201903, end: 20190321
  2. CHOLBAM [Suspect]
     Active Substance: CHOLIC ACID
     Indication: ENZYME ABNORMALITY
     Dosage: 100 MG, 1X/DAY
     Dates: start: 201903, end: 20190321

REACTIONS (4)
  - Liver function test increased [Unknown]
  - Mouth ulceration [Unknown]
  - Abdominal pain [Unknown]
  - Decreased appetite [Recovering/Resolving]

NARRATIVE: CASE EVENT DATE: 2019
